FAERS Safety Report 18539233 (Version 1)
Quarter: 2020Q4

REPORT INFORMATION
  Report Type: Spontaneous
  Country: US (occurrence: US)
  Receive Date: 20201124
  Receipt Date: 20201124
  Transmission Date: 20210114
  Serious: No
  Sender: FDA-Public Use
  Company Number: US-TEVA-2020-US-1852525

PATIENT
  Sex: Male

DRUGS (1)
  1. CLONIDINE PATCHES ACTAVIS [Suspect]
     Active Substance: CLONIDINE
     Indication: HYPERTENSION
     Route: 062
     Dates: start: 2017

REACTIONS (1)
  - Drug ineffective [Unknown]
